FAERS Safety Report 4866525-X (Version None)
Quarter: 2005Q4

REPORT INFORMATION
  Report Type: 
  Country: None (occurrence: None)
  Receive Date: 20051227
  Receipt Date: 20051219
  Transmission Date: 20060501
  Serious: Yes (Hospitalization)
  Sender: FDA-Public Use
  Company Number: 2005SE07409

PATIENT
  Age: 49 Year
  Sex: Female

DRUGS (6)
  1. ATACAND [Suspect]
     Indication: HYPERTENSION
     Route: 048
     Dates: start: 20040909, end: 20041028
  2. ALVEDON [Concomitant]
  3. PLAQUENIL [Concomitant]
     Route: 048
  4. BEHEPAN [Concomitant]
  5. SOLVEZINK [Concomitant]
     Route: 048
  6. ORUDIS [Concomitant]

REACTIONS (7)
  - ABDOMINAL PAIN UPPER [None]
  - FATIGUE [None]
  - HEPATIC FUNCTION ABNORMAL [None]
  - HYPERTHYROIDISM [None]
  - MACULAR DEGENERATION [None]
  - PANCREATITIS [None]
  - TREMOR [None]
